FAERS Safety Report 19241720 (Version 1)
Quarter: 2021Q2

REPORT INFORMATION
  Report Type: Spontaneous
  Country: US (occurrence: US)
  Receive Date: 20210511
  Receipt Date: 20210511
  Transmission Date: 20210717
  Serious: Yes (Other)
  Sender: FDA-Public Use
  Company Number: US-PERRIGO-21US005619

PATIENT
  Age: 25 Year
  Sex: Female

DRUGS (2)
  1. ACETAMINOPHEN. [Suspect]
     Active Substance: ACETAMINOPHEN
     Indication: DENTAL DISCOMFORT
     Dosage: 3000?4000 MG, DAILY
     Route: 048
  2. NORCO [Concomitant]
     Active Substance: ACETAMINOPHEN\HYDROCODONE BITARTRATE
     Indication: DENTAL DISCOMFORT
     Dosage: 5/300 MG, 3?4 TIMES DAILY
     Route: 048

REACTIONS (4)
  - Product use issue [Recovered/Resolved]
  - Metabolic acidosis [Recovered/Resolved]
  - Pancreatitis [Recovered/Resolved]
  - Pyroglutamic acidosis [Recovered/Resolved]
